FAERS Safety Report 25145669 (Version 2)
Quarter: 2025Q2

REPORT INFORMATION
  Report Type: Spontaneous
  Country: US (occurrence: US)
  Receive Date: 20250401
  Receipt Date: 20250411
  Transmission Date: 20250716
  Serious: Yes (Other)
  Sender: VERTEX
  Company Number: US-VERTEX PHARMACEUTICALS-2025-004798

PATIENT
  Age: 61 Year

DRUGS (1)
  1. TRIKAFTA [Suspect]
     Active Substance: ELEXACAFTOR\IVACAFTOR\TEZACAFTOR
     Indication: Cystic fibrosis
     Route: 048

REACTIONS (9)
  - Pulmonary fibrosis [Not Recovered/Not Resolved]
  - Vasculitis [Not Recovered/Not Resolved]
  - Arteriosclerosis [Not Recovered/Not Resolved]
  - Eye injury [Not Recovered/Not Resolved]
  - Cardiac disorder [Not Recovered/Not Resolved]
  - Lupus-like syndrome [Unknown]
  - Livedo reticularis [Unknown]
  - Metabolic disorder [Unknown]
  - Aortic disorder [Not Recovered/Not Resolved]
